FAERS Safety Report 8142513-5 (Version None)
Quarter: 2012Q1

REPORT INFORMATION
  Report Type: 
  Country: None (occurrence: None)
  Receive Date: 20120216
  Receipt Date: 20120216
  Transmission Date: 20120608
  Serious: Yes (Hospitalization)
  Sender: FDA-Public Use
  Company Number: US-BRACCO-007513

PATIENT
  Age: 90 Year
  Sex: Female

DRUGS (2)
  1. BARIUM SULPHATE [Suspect]
     Indication: RECTAL HAEMORRHAGE
     Route: 048
     Dates: start: 20120203, end: 20120203
  2. BARIUM SULPHATE [Suspect]
     Indication: COMPUTED TOMOGRAPHIC COLONOGRAPHY
     Route: 048
     Dates: start: 20120203, end: 20120203

REACTIONS (4)
  - FALL [None]
  - COMA [None]
  - UPPER LIMB FRACTURE [None]
  - BLOOD SODIUM DECREASED [None]
